FAERS Safety Report 5195799-3 (Version None)
Quarter: 2006Q4

REPORT INFORMATION
  Report Type: 
  Country: None (occurrence: None)
  Receive Date: 20061227
  Receipt Date: 20061227
  Transmission Date: 20070319
  Serious: Yes (Other)
  Sender: FDA-Public Use
  Company Number: None

PATIENT
  Age: 38 Year
  Sex: Female
  Weight: 61.2356 kg

DRUGS (2)
  1. MOMETASONE FUROATE CREAM 0.1% [Suspect]
     Indication: SEBORRHOEIC DERMATITIS
     Dosage: AS NEEDED DAILY TOP
     Route: 061
     Dates: start: 20051216, end: 20061205
  2. LUXIQ [Suspect]
     Dosage: SPARINGLY DAILY TOP
     Route: 061
     Dates: start: 20051107, end: 20061205

REACTIONS (8)
  - BURNING SENSATION [None]
  - DRUG INEFFECTIVE [None]
  - DRY SKIN [None]
  - PRURITUS [None]
  - RASH [None]
  - SEBORRHOEIC DERMATITIS [None]
  - SKIN DISORDER [None]
  - SKIN EXFOLIATION [None]
